FAERS Safety Report 10755216 (Version 7)
Quarter: 2015Q2

REPORT INFORMATION
  Report Type: Report from Study
  Country: US (occurrence: US)
  Receive Date: 20150202
  Receipt Date: 20150406
  Transmission Date: 20150821
  Serious: Yes (Hospitalization, Other)
  Sender: FDA-Public Use
  Company Number: US-SANOFI-AVENTIS-2013SA089136

PATIENT
  Age: 47 Year
  Sex: Female

DRUGS (6)
  1. AUBAGIO [Suspect]
     Active Substance: TERIFLUNOMIDE
     Indication: MULTIPLE SCLEROSIS
     Route: 048
     Dates: start: 20130408, end: 20141222
  2. SALAGEN [Suspect]
     Active Substance: PILOCARPINE HYDROCHLORIDE
     Indication: TOOTH DISORDER
     Route: 065
  3. AUBAGIO [Suspect]
     Active Substance: TERIFLUNOMIDE
     Indication: MULTIPLE SCLEROSIS
     Route: 048
     Dates: start: 20141224, end: 20150101
  4. AUBAGIO [Suspect]
     Active Substance: TERIFLUNOMIDE
     Indication: MULTIPLE SCLEROSIS
     Route: 048
     Dates: start: 20130321, end: 20130405
  5. AUBAGIO [Suspect]
     Active Substance: TERIFLUNOMIDE
     Indication: MULTIPLE SCLEROSIS
     Route: 048
     Dates: start: 20130214, end: 20130313
  6. AUBAGIO [Suspect]
     Active Substance: TERIFLUNOMIDE
     Indication: MULTIPLE SCLEROSIS
     Route: 048
     Dates: start: 201503

REACTIONS (30)
  - Nerve compression [Recovering/Resolving]
  - Depression [Unknown]
  - Endodontic procedure [Unknown]
  - Balance disorder [Unknown]
  - Asthenia [Unknown]
  - Pneumonia [Recovering/Resolving]
  - Bone fragmentation [Unknown]
  - Vitreous floaters [Not Recovered/Not Resolved]
  - Intervertebral disc protrusion [Unknown]
  - Impaired driving ability [Unknown]
  - Muscular weakness [Not Recovered/Not Resolved]
  - Fall [Unknown]
  - Lung consolidation [Unknown]
  - Alopecia [Recovering/Resolving]
  - Vision blurred [Not Recovered/Not Resolved]
  - Back pain [Unknown]
  - Demyelination [Unknown]
  - Artificial crown procedure [Unknown]
  - Oral pain [Recovering/Resolving]
  - Pain in extremity [Not Recovered/Not Resolved]
  - Unevaluable event [Unknown]
  - Diplopia [Not Recovered/Not Resolved]
  - Back disorder [Recovering/Resolving]
  - Visual acuity reduced [Not Recovered/Not Resolved]
  - Malaise [Unknown]
  - Knee deformity [Unknown]
  - Dysarthria [Unknown]
  - Fatigue [Unknown]
  - Multiple sclerosis relapse [Unknown]
  - Headache [Unknown]

NARRATIVE: CASE EVENT DATE: 201501
